FAERS Safety Report 8869299 (Version 1)
Quarter: 2012Q4

REPORT INFORMATION
  Report Type: Spontaneous
  Country: DE (occurrence: None)
  Receive Date: 20121022
  Receipt Date: 20121022
  Transmission Date: 20130627
  Serious: Yes (Hospitalization)
  Sender: FDA-Public Use
  Company Number: 2135525-2012-00147

PATIENT
  Age: 74 Year
  Sex: Male

DRUGS (1)
  1. AETHOXYSKLEROL [Suspect]
     Indication: ESOPHAGEAL VARICES

REACTIONS (2)
  - Oesophageal ulcer [None]
  - Oesophageal stenosis [None]
